FAERS Safety Report 10446616 (Version 1)
Quarter: 2014Q3

REPORT INFORMATION
  Report Type: Spontaneous
  Country: US (occurrence: None)
  Receive Date: 20140910
  Receipt Date: 20140910
  Transmission Date: 20150326
  Serious: Yes (Disabling)
  Sender: FDA-Public Use
  Company Number: None

PATIENT
  Age: 49 Year
  Sex: Female
  Weight: 87.09 kg

DRUGS (1)
  1. REMICADE [Suspect]
     Active Substance: INFLIXIMAB
     Route: 061
     Dates: end: 20140909

REACTIONS (2)
  - Breast disorder [None]
  - Drug ineffective [None]

NARRATIVE: CASE EVENT DATE: 20140821
